FAERS Safety Report 10083902 (Version 4)
Quarter: 2014Q2

REPORT INFORMATION
  Report Type: Spontaneous
  Country: DE (occurrence: None)
  Receive Date: 20140415
  Receipt Date: 20140626
  Transmission Date: 20141212
  Serious: Yes (Death, Hospitalization)
  Sender: FDA-Public Use
  Company Number: 2013MPI00400

PATIENT
  Age: 69 Year
  Sex: Male
  Weight: 74 kg

DRUGS (1)
  1. ADCETRIS [Suspect]
     Indication: HODGKIN^S DISEASE
     Dosage: UNK, INTRAVENOUS
     Route: 042
     Dates: start: 20130214, end: 2013

REACTIONS (7)
  - General physical health deterioration [None]
  - Pyrexia [None]
  - Urosepsis [None]
  - Eczema [None]
  - Peripheral sensorimotor neuropathy [None]
  - Escherichia infection [None]
  - Intestinal perforation [None]
